FAERS Safety Report 9789309 (Version 2)
Quarter: 2014Q1

REPORT INFORMATION
  Report Type: Spontaneous
  Country: PL (occurrence: PL)
  Receive Date: 20131231
  Receipt Date: 20140128
  Transmission Date: 20141002
  Serious: Yes (Death, Hospitalization)
  Sender: FDA-Public Use
  Company Number: PL-BAXTER-2013BAX051872

PATIENT
  Sex: Male

DRUGS (2)
  1. CEPROTIN 500 IU POWDER AND SOLVENT FOR SOLUTION FOR INJECTION [Suspect]
     Indication: SEPSIS
     Route: 065
  2. CEPROTIN 500 IU POWDER AND SOLVENT FOR SOLUTION FOR INJECTION [Suspect]
     Indication: OFF LABEL USE

REACTIONS (5)
  - Sepsis [Fatal]
  - Respiratory failure [Fatal]
  - Hypoxia [Fatal]
  - Body temperature increased [Recovered/Resolved]
  - Disseminated intravascular coagulation [Unknown]
